FAERS Safety Report 6617747-9 (Version None)
Quarter: 2010Q1

REPORT INFORMATION
  Report Type: 
  Country: None (occurrence: None)
  Receive Date: 20100308
  Receipt Date: 20100223
  Transmission Date: 20100710
  Serious: Yes (Hospitalization, Other)
  Sender: FDA-Public Use
  Company Number: PHHY2009JP56389

PATIENT
  Sex: Male

DRUGS (11)
  1. DIOVAN [Suspect]
     Indication: HYPERTENSION
     Dosage: 80 MG, QD
     Route: 048
     Dates: start: 20071225, end: 20090616
  2. AMLODIPINE [Concomitant]
     Indication: HYPERTENSION
     Dosage: 2.5 MG, UNK
     Route: 048
     Dates: start: 20080212, end: 20090616
  3. SELBEX [Concomitant]
     Dosage: UNK
     Route: 048
     Dates: end: 20090616
  4. OTHER OINTMENT BASES [Concomitant]
     Dosage: UNK
     Route: 061
     Dates: end: 20090616
  5. PREDNISOLONE [Concomitant]
     Dosage: 10 MG, UNK
     Route: 048
     Dates: end: 20090616
  6. NOVOLIN R [Concomitant]
     Dosage: 23 IU, UNK
     Route: 058
     Dates: start: 20070513, end: 20090616
  7. ASTAT [Concomitant]
     Dosage: UNK
     Route: 061
     Dates: end: 20090616
  8. UREPEARL [Concomitant]
     Dosage: UNK
     Route: 061
     Dates: end: 20090616
  9. ALFAROL [Concomitant]
     Dosage: 0.5 UG, UNK
     Route: 048
     Dates: end: 20090616
  10. FOSAMAX [Concomitant]
     Dosage: 5 MG, UNK
     Route: 048
     Dates: end: 20090616
  11. ALLELOCK [Concomitant]
     Dosage: 10 MG, UNK
     Route: 048
     Dates: end: 20090616

REACTIONS (2)
  - CEREBELLAR HAEMORRHAGE [None]
  - CREATININE URINE INCREASED [None]
